FAERS Safety Report 24948884 (Version 6)
Quarter: 2025Q2

REPORT INFORMATION
  Report Type: Report from Study
  Country: US (occurrence: US)
  Receive Date: 20250210
  Receipt Date: 20250612
  Transmission Date: 20250716
  Serious: Yes (Other)
  Sender: UCB
  Company Number: US-UCBSA-2025007562

PATIENT
  Age: 49 Year
  Sex: Female

DRUGS (4)
  1. BIMEKIZUMAB [Suspect]
     Active Substance: BIMEKIZUMAB
     Indication: Psoriatic arthropathy
     Dosage: 160 MILLIGRAM, EV 4 WEEKS
     Dates: start: 20250118, end: 20250401
  2. TRAMADOL [Concomitant]
     Active Substance: TRAMADOL
     Indication: Product used for unknown indication
     Dosage: 50 MILLIGRAM, 4X/DAY (QID)
  3. LOSARTAN [Concomitant]
     Active Substance: LOSARTAN
     Indication: Blood pressure measurement
     Dosage: 25 MILLIGRAM, ONCE DAILY (QD)
  4. NEBIVOLOL [Concomitant]
     Active Substance: NEBIVOLOL
     Indication: Blood pressure measurement
     Dosage: 10 MILLIGRAM, ONCE DAILY (QD)

REACTIONS (3)
  - Uveitis [Recovered/Resolved]
  - Psoriatic arthropathy [Unknown]
  - Bell^s palsy [Unknown]

NARRATIVE: CASE EVENT DATE: 20250101
